FAERS Safety Report 8473827-7 (Version None)
Quarter: 2012Q2

REPORT INFORMATION
  Report Type: 
  Country: None (occurrence: None)
  Receive Date: 20120628
  Receipt Date: 20111222
  Transmission Date: 20120825
  Serious: Yes (Other)
  Sender: FDA-Public Use
  Company Number: US-MYLANLABS-2011S1025329

PATIENT
  Age: 24 Year
  Sex: Male
  Weight: 92.08 kg

DRUGS (9)
  1. CLOZAPINE [Suspect]
     Indication: SCHIZOAFFECTIVE DISORDER
     Route: 048
     Dates: end: 20111129
  2. DEPAKOTE ER [Concomitant]
  3. CLOZAPINE [Suspect]
     Route: 048
     Dates: start: 20111205, end: 20111212
  4. SEROQUEL XR [Concomitant]
  5. LAMICTAL [Concomitant]
  6. LORAZEPAM [Concomitant]
  7. CLOZAPINE [Suspect]
     Route: 048
     Dates: start: 20111205, end: 20111212
  8. LEVAQUIN [Concomitant]
     Dosage: STARTED ON 17-NOV-2011 FOR 30 DAYS
     Dates: start: 20111117
  9. BENZTROPINE MESYLATE [Concomitant]

REACTIONS (1)
  - GRANULOCYTOPENIA [None]
